FAERS Safety Report 6523064-8 (Version None)
Quarter: 2009Q4

REPORT INFORMATION
  Report Type: 
  Country: None (occurrence: None)
  Receive Date: 20091222
  Receipt Date: 20091211
  Transmission Date: 20100525
  Serious: Yes (Death, Life-Threatening, Hospitalization, Disabling, Other)
  Sender: FDA-Public Use
  Company Number: DSA_41911_2009

PATIENT
  Sex: Female
  Weight: 48.0813 kg

DRUGS (25)
  1. XENAZINE [Suspect]
     Indication: HUNTINGTON'S CHOREA
     Dosage: 25 MG BID ORAL, 25 MG BID ORAL,  DF
     Route: 048
     Dates: start: 20090715, end: 20090101
  2. XENAZINE [Suspect]
     Indication: HUNTINGTON'S CHOREA
     Dosage: 25 MG BID ORAL, 25 MG BID ORAL,  DF
     Route: 048
     Dates: start: 20090319, end: 20090422
  3. XENAZINE [Suspect]
     Indication: HUNTINGTON'S CHOREA
     Dosage: 25 MG BID ORAL, 25 MG BID ORAL,  DF
     Route: 048
     Dates: start: 20090422, end: 20090715
  4. CHLORHEXIDIEN GLUCONATE [Concomitant]
  5. COENZYME Q10 [Concomitant]
  6. DIVALPROXE SODIUM [Concomitant]
  7. HALOPERIDOL LACTATE [Concomitant]
  8. ACETAMINOPHEN [Concomitant]
  9. FRUITE PASTE [Concomitant]
  10. BISACODYL [Concomitant]
  11. LORATADINE [Concomitant]
  12. SORBITOL [Concomitant]
  13. SENNA LAXATIVE [Concomitant]
  14. MULTIVITAMIN /01229101/ [Concomitant]
  15. VITAMIN E [Concomitant]
  16. MEDROXYPPROGESTERONE ACETATE [Concomitant]
  17. CALCIUM WITH VITAMIN D [Concomitant]
  18. POTASSIUM CHLORIDE [Concomitant]
  19. ORAL BALANCE [Concomitant]
  20. DIASTAT ACUDIAL [Concomitant]
  21. DEPAKOTE [Concomitant]
  22. SERTRALINE [Concomitant]
  23. LEVOTHYROXINE SODIUM [Concomitant]
  24. OMEPRAZOLE [Concomitant]
  25. ATIVAN [Concomitant]

REACTIONS (7)
  - COGNITIVE DISORDER [None]
  - CONVULSION [None]
  - DYSPHAGIA [None]
  - LETHARGY [None]
  - PHARYNGITIS [None]
  - PNEUMONIA [None]
  - WEIGHT DECREASED [None]
